FAERS Safety Report 4502958-9 (Version None)
Quarter: 2004Q4

REPORT INFORMATION
  Report Type: 
  Country: None (occurrence: None)
  Receive Date: 20041117
  Receipt Date: 20041109
  Transmission Date: 20050328
  Serious: Yes (Other)
  Sender: FDA-Public Use
  Company Number: PHNU2004DE03822

PATIENT
  Age: 1 Year
  Sex: Male

DRUGS (2)
  1. SANDOSTATIN [Suspect]
     Indication: CHYLOTHORAX
     Dosage: 1 UG/KG/D
     Dates: start: 20041101
  2. SANDOSTATIN [Suspect]
     Dosage: 2 UG/KG/D

REACTIONS (1)
  - ATRIOVENTRICULAR BLOCK SECOND DEGREE [None]
